FAERS Safety Report 8489363-8 (Version None)
Quarter: 2012Q3

REPORT INFORMATION
  Report Type: 
  Country: None (occurrence: None)
  Receive Date: 20120705
  Receipt Date: 20120622
  Transmission Date: 20120928
  Serious: Yes (Hospitalization)
  Sender: FDA-Public Use
  Company Number: US-DX529-2012DX000144

PATIENT
  Age: 46 Year
  Sex: Female

DRUGS (7)
  1. COUMADIN [Concomitant]
     Indication: PULMONARY EMBOLISM
  2. CINRYZE [Concomitant]
     Indication: HEREDITARY ANGIOEDEMA
     Route: 042
  3. OPIOIDS [Suspect]
     Indication: PRODUCT USED FOR UNKNOWN INDICATION
  4. DANAZOL [Suspect]
     Indication: PRODUCT USED FOR UNKNOWN INDICATION
  5. DILANTIN [Concomitant]
     Indication: CONVULSION
  6. KALBITOR [Suspect]
     Indication: HEREDITARY ANGIOEDEMA
     Route: 058
     Dates: start: 20120418, end: 20120418
  7. KALBITOR [Suspect]
     Route: 058
     Dates: start: 20120621, end: 20120621

REACTIONS (7)
  - HYPONATRAEMIA [None]
  - CONSTIPATION [None]
  - ALANINE AMINOTRANSFERASE INCREASED [None]
  - INTERNATIONAL NORMALISED RATIO INCREASED [None]
  - HEREDITARY ANGIOEDEMA [None]
  - ABDOMINAL PAIN [None]
  - ASPARTATE AMINOTRANSFERASE INCREASED [None]
